FAERS Safety Report 10443424 (Version 1)
Quarter: 2014Q3

REPORT INFORMATION
  Report Type: Report from Study
  Country: US (occurrence: US)
  Receive Date: 20140910
  Receipt Date: 20140910
  Transmission Date: 20150326
  Serious: No
  Sender: FDA-Public Use
  Company Number: US-009507513-1409USA003873

PATIENT
  Age: 26 Year
  Sex: Female
  Weight: 62.13 kg

DRUGS (1)
  1. IMPLANON [Suspect]
     Active Substance: ETONOGESTREL
     Dosage: UNK
     Dates: start: 20140124, end: 20140905

REACTIONS (2)
  - Menstruation irregular [Unknown]
  - Medical device removal [Unknown]

NARRATIVE: CASE EVENT DATE: 2014
